FAERS Safety Report 12947347 (Version 1)
Quarter: 2016Q4

REPORT INFORMATION
  Report Type: Report from Study
  Country: JP (occurrence: JP)
  Receive Date: 20161116
  Receipt Date: 20161116
  Transmission Date: 20170207
  Serious: Yes (Hospitalization)
  Sender: FDA-Public Use
  Company Number: JP-JNJFOC-20161113554

PATIENT
  Age: 46 Year
  Sex: Male

DRUGS (130)
  1. FENTANYL. [Concomitant]
     Active Substance: FENTANYL
     Indication: SEDATION
     Route: 065
     Dates: start: 20160205, end: 20160205
  2. SEISHOKU [Concomitant]
     Active Substance: SODIUM CHLORIDE
     Indication: DEPRESSION
     Route: 065
     Dates: start: 20160204, end: 20160218
  3. MUCODYNE [Concomitant]
     Active Substance: CARBOCYSTEINE
     Indication: SPUTUM ABNORMAL
     Route: 048
     Dates: start: 20160218, end: 20160302
  4. PRIMPERAN [Concomitant]
     Active Substance: METOCLOPRAMIDE HYDROCHLORIDE
     Indication: NAUSEA
     Route: 065
     Dates: start: 20160318
  5. PRIMPERAN [Concomitant]
     Active Substance: METOCLOPRAMIDE HYDROCHLORIDE
     Indication: NAUSEA
     Route: 065
     Dates: start: 20160127, end: 20160203
  6. VIDARABINE [Concomitant]
     Active Substance: VIDARABINE
     Indication: PROPHYLAXIS
     Route: 065
     Dates: start: 20160202, end: 20160208
  7. SOLDEM 3A [Concomitant]
     Active Substance: CARBOHYDRATES\POTASSIUM CHLORIDE\SODIUM CHLORIDE\SODIUM LACTATE
     Indication: FLUID REPLACEMENT
     Route: 065
     Dates: start: 20160204, end: 20160207
  8. PRODIF [Concomitant]
     Active Substance: FOSFLUCONAZOLE
     Indication: PROPHYLAXIS
     Route: 065
     Dates: start: 20160208, end: 20160218
  9. ISOTONIC SODIUM CHLORIDE SOLUTION [Concomitant]
     Active Substance: SODIUM CHLORIDE
     Indication: PNEUMONIA ASPIRATION
     Route: 065
     Dates: start: 20160201, end: 20160204
  10. ISOTONIC SODIUM CHLORIDE SOLUTION [Concomitant]
     Active Substance: SODIUM CHLORIDE
     Indication: ECZEMA
     Route: 065
     Dates: start: 20160202, end: 20160208
  11. ISOTONIC SODIUM CHLORIDE SOLUTION [Concomitant]
     Active Substance: SODIUM CHLORIDE
     Indication: PROPHYLAXIS
     Route: 065
     Dates: start: 20160130, end: 20160130
  12. ISOTONIC SODIUM CHLORIDE SOLUTION [Concomitant]
     Active Substance: SODIUM CHLORIDE
     Indication: MENINGITIS BACTERIAL
     Route: 065
     Dates: start: 20160201, end: 20160204
  13. ISOTONIC SODIUM CHLORIDE SOLUTION [Concomitant]
     Active Substance: SODIUM CHLORIDE
     Indication: MENINGITIS BACTERIAL
     Route: 065
     Dates: start: 20160205, end: 20160208
  14. ESLAX [Concomitant]
     Active Substance: ROCURONIUM BROMIDE
     Indication: PNEUMONIA ASPIRATION
     Route: 065
     Dates: start: 20160204, end: 20160204
  15. GABEXATE MESILATE [Concomitant]
     Active Substance: GABEXATE MESYLATE
     Indication: PANCREATITIS
     Route: 065
     Dates: start: 20160208, end: 20160302
  16. KCL CORRECTIVE [Concomitant]
     Indication: ELECTROLYTE SUBSTITUTION THERAPY
     Route: 065
     Dates: start: 20160208, end: 20160208
  17. FENTANYL. [Concomitant]
     Active Substance: FENTANYL
     Indication: SEDATION
     Route: 065
     Dates: start: 20160205, end: 20160205
  18. SOLACET F [Concomitant]
     Indication: FLUID REPLACEMENT
     Route: 065
     Dates: start: 20160201, end: 20160203
  19. SOLYUGEN G [Concomitant]
     Indication: FLUID REPLACEMENT
     Route: 065
     Dates: start: 20160127, end: 20160203
  20. TAKEPRON [Concomitant]
     Active Substance: LANSOPRAZOLE
     Indication: GASTRITIS PROPHYLAXIS
     Route: 065
     Dates: start: 20160204, end: 20160218
  21. BFLUID [Concomitant]
     Active Substance: AMINO ACIDS\DEXTROSE\ELECTROLYTES NOS\VITAMINS
     Indication: FLUID REPLACEMENT
     Route: 065
     Dates: start: 20160312, end: 20160312
  22. BFLUID [Concomitant]
     Active Substance: AMINO ACIDS\DEXTROSE\ELECTROLYTES NOS\VITAMINS
     Indication: FLUID REPLACEMENT
     Route: 065
     Dates: start: 20160314, end: 20160314
  23. BACTRAMIN [Concomitant]
     Active Substance: SULFAMETHOXAZOLE\TRIMETHOPRIM
     Indication: CYTOMEGALOVIRUS INFECTION
     Route: 065
     Dates: start: 20160209, end: 20160209
  24. POLARAMINE [Concomitant]
     Active Substance: DEXCHLORPHENIRAMINE MALEATE
     Indication: ECZEMA
     Route: 065
     Dates: start: 20160225, end: 20160225
  25. ISOTONIC SODIUM CHLORIDE SOLUTION [Concomitant]
     Active Substance: SODIUM CHLORIDE
     Indication: PNEUMONIA ASPIRATION
     Route: 065
     Dates: start: 20160101, end: 20160102
  26. ISOTONIC SODIUM CHLORIDE SOLUTION [Concomitant]
     Active Substance: SODIUM CHLORIDE
     Indication: ECZEMA
     Route: 065
     Dates: start: 20160101, end: 20160102
  27. ISOTONIC SODIUM CHLORIDE SOLUTION [Concomitant]
     Active Substance: SODIUM CHLORIDE
     Indication: MENINGITIS BACTERIAL
     Route: 065
     Dates: start: 20160205, end: 20160214
  28. GLYCERIN AND FRUCTOSE [Concomitant]
     Indication: MENINGITIS BACTERIAL
     Route: 065
     Dates: start: 20160205, end: 20160205
  29. VANCOMYCIN [Concomitant]
     Active Substance: VANCOMYCIN
     Indication: PNEUMONIA ASPIRATION
     Route: 065
     Dates: start: 20160205, end: 20160208
  30. INTELENCE [Suspect]
     Active Substance: ETRAVIRINE
     Indication: ACQUIRED IMMUNODEFICIENCY SYNDROME
     Route: 048
     Dates: start: 20100515, end: 20160202
  31. ISENTRESS [Concomitant]
     Active Substance: RALTEGRAVIR POTASSIUM
     Indication: ACQUIRED IMMUNODEFICIENCY SYNDROME
     Route: 048
     Dates: start: 20090620, end: 20160202
  32. TRUVADA [Concomitant]
     Active Substance: EMTRICITABINE\TENOFOVIR DISOPROXIL FUMARATE
     Indication: ACQUIRED IMMUNODEFICIENCY SYNDROME
     Route: 048
     Dates: start: 20090620, end: 20160202
  33. MUCOSTA [Concomitant]
     Active Substance: REBAMIPIDE
     Indication: GASTRITIS PROPHYLAXIS
     Route: 048
     Dates: start: 20160218, end: 20160302
  34. PRECEDEX [Concomitant]
     Active Substance: DEXMEDETOMIDINE HYDROCHLORIDE
     Indication: SEDATION
     Route: 065
     Dates: start: 20160205, end: 20160208
  35. FULCALIQ [Concomitant]
     Active Substance: AMINO ACIDS\CARBOHYDRATES\ELECTROLYTES NOS\VITAMINS
     Indication: FLUID REPLACEMENT
     Route: 065
     Dates: start: 20160311, end: 20160311
  36. ISOTONIC SODIUM CHLORIDE SOLUTION [Concomitant]
     Active Substance: SODIUM CHLORIDE
     Indication: ECZEMA
     Route: 065
     Dates: start: 20160201, end: 20160204
  37. ISOTONIC SODIUM CHLORIDE SOLUTION [Concomitant]
     Active Substance: SODIUM CHLORIDE
     Indication: PROPHYLAXIS
     Route: 065
     Dates: start: 20160130, end: 20160131
  38. ISOTONIC SODIUM CHLORIDE SOLUTION [Concomitant]
     Active Substance: SODIUM CHLORIDE
     Indication: PROPHYLAXIS
     Route: 065
     Dates: start: 20160202, end: 20160208
  39. ISOTONIC SODIUM CHLORIDE SOLUTION [Concomitant]
     Active Substance: SODIUM CHLORIDE
     Indication: PROPHYLAXIS
     Route: 065
     Dates: start: 20160201, end: 20160204
  40. ISOTONIC SODIUM CHLORIDE SOLUTION [Concomitant]
     Active Substance: SODIUM CHLORIDE
     Indication: MENINGITIS BACTERIAL
     Route: 065
     Dates: start: 20160202, end: 20160208
  41. GLYCERIN AND FRUCTOSE [Concomitant]
     Indication: MENINGITIS BACTERIAL
     Route: 065
     Dates: start: 20160202, end: 20160204
  42. GLYCERIN AND FRUCTOSE [Concomitant]
     Indication: MENINGITIS BACTERIAL
     Route: 065
     Dates: start: 20160201, end: 20160201
  43. GLUCOSE [Concomitant]
     Active Substance: DEXTROSE
     Indication: PANCREATITIS
     Route: 065
     Dates: start: 20160208, end: 20160302
  44. ACICLOVIR [Suspect]
     Active Substance: ACYCLOVIR
     Indication: HERPES ZOSTER
     Route: 065
     Dates: start: 20140708, end: 20140710
  45. GASTER [Concomitant]
     Active Substance: FAMOTIDINE
     Indication: GASTRITIS PROPHYLAXIS
     Route: 048
     Dates: start: 20160302, end: 20160318
  46. GANCICLOVIR. [Concomitant]
     Active Substance: GANCICLOVIR
     Indication: CYTOMEGALOVIRUS INFECTION
     Route: 041
     Dates: start: 20160330
  47. DEPAS [Concomitant]
     Active Substance: ETIZOLAM
     Indication: DEPRESSION
     Route: 048
     Dates: start: 20151110
  48. MIYA-BM [Concomitant]
     Active Substance: CLOSTRIDIUM BUTYRICUM SPORES STRAIN M-55
     Indication: PYREXIA
     Route: 065
     Dates: start: 20160218, end: 20160320
  49. SOLACET F [Concomitant]
     Indication: FLUID REPLACEMENT
     Route: 065
     Dates: start: 20151210, end: 20151211
  50. POLARAMINE [Concomitant]
     Active Substance: DEXCHLORPHENIRAMINE MALEATE
     Indication: ECZEMA
     Route: 065
     Dates: start: 20160317, end: 20160325
  51. SOLU-MEDROL [Concomitant]
     Active Substance: METHYLPREDNISOLONE SODIUM SUCCINATE
     Indication: ECZEMA
     Route: 065
     Dates: start: 20160319, end: 20160319
  52. ISOTONIC SODIUM CHLORIDE SOLUTION [Concomitant]
     Active Substance: SODIUM CHLORIDE
     Indication: SEDATION
     Route: 065
     Dates: start: 20160202, end: 20160208
  53. ISOTONIC SODIUM CHLORIDE SOLUTION [Concomitant]
     Active Substance: SODIUM CHLORIDE
     Indication: PNEUMONIA ASPIRATION
     Route: 065
     Dates: start: 20160130, end: 20160131
  54. ISOTONIC SODIUM CHLORIDE SOLUTION [Concomitant]
     Active Substance: SODIUM CHLORIDE
     Indication: ECZEMA
     Route: 065
     Dates: start: 20160205, end: 20160214
  55. ISOTONIC SODIUM CHLORIDE SOLUTION [Concomitant]
     Active Substance: SODIUM CHLORIDE
     Indication: ECZEMA
     Route: 065
     Dates: start: 20160205, end: 20160208
  56. ISOTONIC SODIUM CHLORIDE SOLUTION [Concomitant]
     Active Substance: SODIUM CHLORIDE
     Indication: MENINGITIS BACTERIAL
     Route: 065
     Dates: start: 20160101, end: 20160102
  57. ISOTONIC SODIUM CHLORIDE SOLUTION [Concomitant]
     Active Substance: SODIUM CHLORIDE
     Indication: MENINGITIS BACTERIAL
     Route: 065
     Dates: start: 20160130, end: 20160131
  58. SOLYUGEN G [Concomitant]
     Indication: FLUID REPLACEMENT
     Route: 065
     Dates: start: 20160202, end: 20160202
  59. SOLYUGEN G [Concomitant]
     Indication: FLUID REPLACEMENT
     Route: 065
     Dates: start: 20160127, end: 20160203
  60. PENTAZOCINE HYDROCHLORIDE [Concomitant]
     Active Substance: PENTAZOCINE HYDROCHLORIDE
     Indication: MENINGITIS BACTERIAL
     Route: 065
     Dates: start: 20160130, end: 20160130
  61. VANCOMYCIN [Concomitant]
     Active Substance: VANCOMYCIN
     Indication: MENINGITIS BACTERIAL
     Route: 065
     Dates: start: 20160203, end: 20160204
  62. VANCOMYCIN [Concomitant]
     Active Substance: VANCOMYCIN
     Indication: MENINGITIS BACTERIAL
     Route: 065
     Dates: start: 20160209, end: 20160214
  63. TRUVADA [Concomitant]
     Active Substance: EMTRICITABINE\TENOFOVIR DISOPROXIL FUMARATE
     Indication: ACQUIRED IMMUNODEFICIENCY SYNDROME
     Route: 048
     Dates: start: 20160307
  64. LANSOPRAZOLE. [Concomitant]
     Active Substance: LANSOPRAZOLE
     Indication: GASTRITIS PROPHYLAXIS
     Route: 065
     Dates: start: 20160218, end: 20160302
  65. SOLACET F [Concomitant]
     Indication: FLUID REPLACEMENT
     Route: 065
     Dates: start: 20160302, end: 20160307
  66. SOLYUGEN G [Concomitant]
     Indication: FLUID REPLACEMENT
     Route: 065
     Dates: start: 20160202, end: 20160202
  67. SOLYUGEN G [Concomitant]
     Indication: FLUID REPLACEMENT
     Route: 065
     Dates: start: 20151211, end: 20151218
  68. SOLYUGEN G [Concomitant]
     Indication: FLUID REPLACEMENT
     Route: 065
     Dates: start: 20160314, end: 20160325
  69. BFLUID [Concomitant]
     Active Substance: AMINO ACIDS\DEXTROSE\ELECTROLYTES NOS\VITAMINS
     Indication: FLUID REPLACEMENT
     Route: 065
     Dates: start: 20160207, end: 20160208
  70. SERENACE [Concomitant]
     Active Substance: HALOPERIDOL
     Indication: SEDATION
     Route: 065
     Dates: start: 20160207, end: 20160208
  71. GLUCOSE [Concomitant]
     Active Substance: DEXTROSE
     Indication: CYTOMEGALOVIRUS INFECTION
     Route: 065
     Dates: start: 20160209, end: 20160209
  72. FULCALIQ [Concomitant]
     Active Substance: AMINO ACIDS\CARBOHYDRATES\ELECTROLYTES NOS\VITAMINS
     Indication: FLUID REPLACEMENT
     Route: 065
     Dates: start: 20160208, end: 20160301
  73. POLARAMINE [Concomitant]
     Active Substance: DEXCHLORPHENIRAMINE MALEATE
     Indication: ECZEMA
     Route: 065
     Dates: start: 20160301, end: 20160301
  74. ISOTONIC SODIUM CHLORIDE SOLUTION [Concomitant]
     Active Substance: SODIUM CHLORIDE
     Indication: SEDATION
     Route: 065
     Dates: start: 20160130, end: 20160130
  75. ISOTONIC SODIUM CHLORIDE SOLUTION [Concomitant]
     Active Substance: SODIUM CHLORIDE
     Indication: ECZEMA
     Route: 065
     Dates: start: 20160130, end: 20160131
  76. ISOTONIC SODIUM CHLORIDE SOLUTION [Concomitant]
     Active Substance: SODIUM CHLORIDE
     Indication: ECZEMA
     Route: 065
     Dates: start: 20160130, end: 20160130
  77. VANCOMYCIN [Concomitant]
     Active Substance: VANCOMYCIN
     Indication: MENINGITIS BACTERIAL
     Route: 065
     Dates: start: 20160208, end: 20160208
  78. PREZISTA [Concomitant]
     Active Substance: DARUNAVIR ETHANOLATE
     Indication: ACQUIRED IMMUNODEFICIENCY SYNDROME
     Route: 048
     Dates: start: 20160307
  79. ISENTRESS [Concomitant]
     Active Substance: RALTEGRAVIR POTASSIUM
     Indication: ACQUIRED IMMUNODEFICIENCY SYNDROME
     Route: 048
     Dates: start: 20160307
  80. NORVIR [Concomitant]
     Active Substance: RITONAVIR
     Indication: ACQUIRED IMMUNODEFICIENCY SYNDROME
     Route: 048
     Dates: start: 20160307
  81. LEXOTAN [Concomitant]
     Active Substance: BROMAZEPAM
     Indication: PANIC DISORDER
     Route: 048
     Dates: start: 20150421, end: 20160202
  82. WASSER V [Concomitant]
     Indication: MALAISE
     Route: 048
     Dates: start: 20150407, end: 20160202
  83. DIFLUCAN [Concomitant]
     Active Substance: FLUCONAZOLE
     Indication: PROPHYLAXIS
     Route: 065
     Dates: start: 20160218, end: 20160310
  84. LOXONIN [Concomitant]
     Active Substance: LOXOPROFEN SODIUM
     Indication: PYREXIA
     Route: 065
     Dates: start: 20150421
  85. SOLU-CORTEF [Concomitant]
     Active Substance: HYDROCORTISONE SODIUM SUCCINATE
     Indication: ECZEMA
     Route: 065
     Dates: start: 20160130, end: 20160130
  86. FULCALIQ [Concomitant]
     Active Substance: AMINO ACIDS\CARBOHYDRATES\ELECTROLYTES NOS\VITAMINS
     Indication: FLUID REPLACEMENT
     Route: 065
     Dates: start: 20160303, end: 20160307
  87. VOLVIX [Concomitant]
     Indication: VITAMIN SUPPLEMENTATION
     Route: 065
     Dates: start: 20160208, end: 20160310
  88. ISOTONIC SODIUM CHLORIDE SOLUTION [Concomitant]
     Active Substance: SODIUM CHLORIDE
     Indication: SEDATION
     Route: 065
     Dates: start: 20160101, end: 20160102
  89. ISOTONIC SODIUM CHLORIDE SOLUTION [Concomitant]
     Active Substance: SODIUM CHLORIDE
     Indication: SEDATION
     Route: 065
     Dates: start: 20160201, end: 20160204
  90. ISOTONIC SODIUM CHLORIDE SOLUTION [Concomitant]
     Active Substance: SODIUM CHLORIDE
     Indication: PNEUMONIA ASPIRATION
     Route: 065
     Dates: start: 20160202, end: 20160208
  91. ISOTONIC SODIUM CHLORIDE SOLUTION [Concomitant]
     Active Substance: SODIUM CHLORIDE
     Indication: PNEUMONIA ASPIRATION
     Route: 065
     Dates: start: 20160205, end: 20160214
  92. VANCOMYCIN [Concomitant]
     Active Substance: VANCOMYCIN
     Indication: PNEUMONIA ASPIRATION
     Route: 065
     Dates: start: 20160203, end: 20160204
  93. VANCOMYCIN [Concomitant]
     Active Substance: VANCOMYCIN
     Indication: MENINGITIS BACTERIAL
     Route: 065
     Dates: start: 20160205, end: 20160208
  94. NONTHRON [Concomitant]
     Indication: ANTITHROMBIN III DECREASED
     Route: 065
     Dates: start: 20160204, end: 20160204
  95. BROTIZOLAM [Concomitant]
     Active Substance: BROTIZOLAM
     Indication: DEPRESSION
     Route: 048
     Dates: start: 20130401, end: 20160202
  96. MYSLEE [Concomitant]
     Active Substance: ZOLPIDEM TARTRATE
     Indication: DEPRESSION
     Route: 048
     Dates: start: 20130401, end: 20160331
  97. SOLYUGEN G [Concomitant]
     Indication: FLUID REPLACEMENT
     Route: 065
     Dates: start: 20160201, end: 20160201
  98. NEOLAMIN [Concomitant]
     Indication: VITAMIN SUPPLEMENTATION
     Route: 065
     Dates: start: 20160202, end: 20160203
  99. FULCALIQ [Concomitant]
     Active Substance: AMINO ACIDS\CARBOHYDRATES\ELECTROLYTES NOS\VITAMINS
     Indication: FLUID REPLACEMENT
     Route: 065
     Dates: start: 20160208, end: 20160310
  100. FULCALIQ [Concomitant]
     Active Substance: AMINO ACIDS\CARBOHYDRATES\ELECTROLYTES NOS\VITAMINS
     Indication: FLUID REPLACEMENT
     Route: 065
     Dates: start: 20160208, end: 20160208
  101. BACTRAMIN [Concomitant]
     Active Substance: SULFAMETHOXAZOLE\TRIMETHOPRIM
     Indication: CYTOMEGALOVIRUS INFECTION
     Route: 065
     Dates: start: 20160210, end: 20160220
  102. POLARAMINE [Concomitant]
     Active Substance: DEXCHLORPHENIRAMINE MALEATE
     Indication: ECZEMA
     Route: 065
     Dates: start: 20160326, end: 20160327
  103. METHYLPREDNISOLONE. [Concomitant]
     Active Substance: METHYLPREDNISOLONE
     Indication: ECZEMA
     Route: 065
     Dates: start: 20160302, end: 20160302
  104. METHYLPREDNISOLONE. [Concomitant]
     Active Substance: METHYLPREDNISOLONE
     Indication: ECZEMA
     Route: 065
     Dates: start: 20160314, end: 20160314
  105. ISOTONIC SODIUM CHLORIDE SOLUTION [Concomitant]
     Active Substance: SODIUM CHLORIDE
     Indication: SEDATION
     Route: 065
     Dates: start: 20160205, end: 20160208
  106. ISOTONIC SODIUM CHLORIDE SOLUTION [Concomitant]
     Active Substance: SODIUM CHLORIDE
     Indication: PROPHYLAXIS
     Route: 065
     Dates: start: 20160101, end: 20160102
  107. ISOTONIC SODIUM CHLORIDE SOLUTION [Concomitant]
     Active Substance: SODIUM CHLORIDE
     Indication: PROPHYLAXIS
     Route: 065
     Dates: start: 20160205, end: 20160208
  108. ISOTONIC SODIUM CHLORIDE SOLUTION [Concomitant]
     Active Substance: SODIUM CHLORIDE
     Indication: PROPHYLAXIS
     Route: 065
     Dates: start: 20160205, end: 20160214
  109. ISOTONIC SODIUM CHLORIDE SOLUTION [Concomitant]
     Active Substance: SODIUM CHLORIDE
     Indication: MENINGITIS BACTERIAL
     Route: 065
     Dates: start: 20160130, end: 20160130
  110. VANCOMYCIN [Concomitant]
     Active Substance: VANCOMYCIN
     Indication: PNEUMONIA ASPIRATION
     Route: 065
     Dates: start: 20160208, end: 20160208
  111. BISOLVON [Concomitant]
     Active Substance: BROMHEXINE HYDROCHLORIDE
     Indication: PNEUMONIA ASPIRATION
     Route: 065
     Dates: start: 20160205, end: 20160218
  112. INTELENCE [Suspect]
     Active Substance: ETRAVIRINE
     Indication: ACQUIRED IMMUNODEFICIENCY SYNDROME
     Route: 048
     Dates: start: 20160307
  113. PREZISTA [Concomitant]
     Active Substance: DARUNAVIR ETHANOLATE
     Indication: ACQUIRED IMMUNODEFICIENCY SYNDROME
     Route: 048
     Dates: start: 20100515, end: 20140228
  114. RISPERDAL [Concomitant]
     Active Substance: RISPERIDONE
     Indication: PANIC DISORDER
     Route: 048
     Dates: start: 20160304
  115. HOCHUEKKITO [Concomitant]
     Active Substance: HERBALS
     Indication: MALAISE
     Route: 048
     Dates: start: 20150407, end: 20160202
  116. BAKTAR [Concomitant]
     Active Substance: SULFAMETHOXAZOLE\TRIMETHOPRIM
     Indication: PROPHYLAXIS
     Route: 048
     Dates: start: 20160220, end: 20160221
  117. ZYPREXA [Concomitant]
     Active Substance: OLANZAPINE
     Indication: PANIC DISORDER
     Route: 048
     Dates: start: 20160219, end: 20160302
  118. EBASTINE [Concomitant]
     Active Substance: EBASTINE
     Indication: ECZEMA
     Route: 048
     Dates: start: 20160302
  119. SOLYUGEN G [Concomitant]
     Indication: FLUID REPLACEMENT
     Route: 065
     Dates: start: 20160330
  120. PROPOFOL. [Concomitant]
     Active Substance: PROPOFOL
     Indication: SEDATION
     Route: 065
     Dates: start: 20160204, end: 20160205
  121. BFLUID [Concomitant]
     Active Substance: AMINO ACIDS\DEXTROSE\ELECTROLYTES NOS\VITAMINS
     Indication: FLUID REPLACEMENT
     Route: 065
     Dates: start: 20160311, end: 20160311
  122. GLUCOSE [Concomitant]
     Active Substance: DEXTROSE
     Indication: CYTOMEGALOVIRUS INFECTION
     Route: 065
     Dates: start: 20160210, end: 20160220
  123. METHYLPREDNISOLONE. [Concomitant]
     Active Substance: METHYLPREDNISOLONE
     Indication: ECZEMA
     Route: 065
     Dates: start: 20160306, end: 20160306
  124. SOLU-MEDROL [Concomitant]
     Active Substance: METHYLPREDNISOLONE SODIUM SUCCINATE
     Indication: ECZEMA
     Route: 065
     Dates: start: 20160325, end: 20160325
  125. ISOTONIC SODIUM CHLORIDE SOLUTION [Concomitant]
     Active Substance: SODIUM CHLORIDE
     Indication: SEDATION
     Route: 065
     Dates: start: 20160130, end: 20160131
  126. ISOTONIC SODIUM CHLORIDE SOLUTION [Concomitant]
     Active Substance: SODIUM CHLORIDE
     Indication: SEDATION
     Route: 065
     Dates: start: 20160205, end: 20160214
  127. ISOTONIC SODIUM CHLORIDE SOLUTION [Concomitant]
     Active Substance: SODIUM CHLORIDE
     Indication: PNEUMONIA ASPIRATION
     Route: 065
     Dates: start: 20160130, end: 20160130
  128. ISOTONIC SODIUM CHLORIDE SOLUTION [Concomitant]
     Active Substance: SODIUM CHLORIDE
     Indication: PNEUMONIA ASPIRATION
     Route: 065
     Dates: start: 20160205, end: 20160208
  129. VANCOMYCIN [Concomitant]
     Active Substance: VANCOMYCIN
     Indication: PNEUMONIA ASPIRATION
     Route: 065
     Dates: start: 20160209, end: 20160214
  130. VENOGLOBULIN IH [Concomitant]
     Active Substance: HUMAN IMMUNOGLOBULIN G
     Indication: PNEUMONIA ASPIRATION
     Route: 065
     Dates: start: 20160204, end: 20160205

REACTIONS (5)
  - Pancreatitis [Not Recovered/Not Resolved]
  - Hepatic function abnormal [Not Recovered/Not Resolved]
  - Antithrombin III decreased [Recovered/Resolved]
  - Meningitis bacterial [Not Recovered/Not Resolved]
  - Pneumonia aspiration [Recovered/Resolved]

NARRATIVE: CASE EVENT DATE: 20160104
